FAERS Safety Report 6686920-6 (Version None)
Quarter: 2010Q2

REPORT INFORMATION
  Report Type: 
  Country: None (occurrence: None)
  Receive Date: 20100419
  Receipt Date: 20100406
  Transmission Date: 20101027
  Serious: Yes (Hospitalization, Other)
  Sender: FDA-Public Use
  Company Number: PHHY2010JP21291

PATIENT
  Age: 36 Year
  Sex: Female

DRUGS (6)
  1. CYCLOSPORINE [Suspect]
     Indication: ALLOGENIC BONE MARROW TRANSPLANTATION THERAPY
  2. CYCLOSPORINE [Suspect]
     Indication: PROPHYLAXIS AGAINST GRAFT VERSUS HOST DISEASE
  3. METHOTREXATE [Suspect]
     Indication: ALLOGENIC BONE MARROW TRANSPLANTATION THERAPY
  4. METHOTREXATE [Suspect]
     Indication: PROPHYLAXIS AGAINST GRAFT VERSUS HOST DISEASE
  5. CYCLOPHOSPHAMIDE [Concomitant]
     Indication: ALLOGENIC BONE MARROW TRANSPLANTATION THERAPY
  6. IRRADIATION [Concomitant]
     Indication: ALLOGENIC BONE MARROW TRANSPLANTATION THERAPY

REACTIONS (14)
  - ACUTE GRAFT VERSUS HOST DISEASE IN LIVER [None]
  - ADENOVIRUS INFECTION [None]
  - BILE DUCT OBSTRUCTION [None]
  - BILE DUCT STENOSIS [None]
  - BILE DUCT STENT INSERTION [None]
  - BILIARY DRAINAGE [None]
  - BILIARY TRACT DILATION PROCEDURE [None]
  - BILIARY TRACT DISORDER [None]
  - CAST REMOVAL [None]
  - CHRONIC GRAFT VERSUS HOST DISEASE [None]
  - DILATATION INTRAHEPATIC DUCT ACQUIRED [None]
  - HEPATIC ENZYME INCREASED [None]
  - JAUNDICE [None]
  - MULTI-ORGAN FAILURE [None]
